FAERS Safety Report 20541372 (Version 1)
Quarter: 2022Q1

REPORT INFORMATION
  Report Type: Spontaneous
  Country: NL (occurrence: NL)
  Receive Date: 20220302
  Receipt Date: 20220302
  Transmission Date: 20220424
  Serious: Yes (Hospitalization)
  Sender: FDA-Public Use
  Company Number: None

PATIENT
  Age: 81 Year
  Sex: Male
  Weight: 75 kg

DRUGS (7)
  1. XARELTO [Suspect]
     Active Substance: RIVAROXABAN
     Indication: Acute coronary syndrome
     Dosage: 1DD
     Route: 048
     Dates: start: 20210927, end: 20211001
  2. NADROPARIN [Concomitant]
     Active Substance: NADROPARIN
     Dosage: UNK
  3. BUMETANIDE [Concomitant]
     Active Substance: BUMETANIDE
     Dosage: INJECTIEVLOEISTOF, 0,5 MG/ML (MILLIGRAM PER MILLILITER)
  4. RIFAMPIN [Concomitant]
     Active Substance: RIFAMPIN
     Dosage: CAPSULE, 300 MG (MILLIGRAM)
  5. PANTOPRAZOLE [Concomitant]
     Active Substance: PANTOPRAZOLE
     Dosage: POEDER INJECTIEVLOEISTOF, 40 MG (MILLIGRAM)
  6. CLOPIDOGREL [Concomitant]
     Active Substance: CLOPIDOGREL BISULFATE
     Dosage: TABLET, 75 MG (MILLIGRAM)
  7. PENICILLIN G [Concomitant]
     Active Substance: PENICILLIN G
     Dosage: SUSPENSIE VOOR INJECTIE, 1,2 ME

REACTIONS (1)
  - Urticaria [Recovered/Resolved]

NARRATIVE: CASE EVENT DATE: 20210928
